FAERS Safety Report 20445414 (Version 2)
Quarter: 2022Q1

REPORT INFORMATION
  Report Type: Report from Study
  Country: MX (occurrence: MX)
  Receive Date: 20220208
  Receipt Date: 20220222
  Transmission Date: 20220423
  Serious: Yes (Other)
  Sender: FDA-Public Use
  Company Number: MX-NOVARTISPH-NVSC2022MX026770

PATIENT
  Sex: Female
  Weight: 70 kg

DRUGS (3)
  1. METFORMIN HYDROCHLORIDE\VILDAGLIPTIN [Suspect]
     Active Substance: METFORMIN HYDROCHLORIDE\VILDAGLIPTIN
     Indication: Diabetes mellitus
     Dosage: 1 DOSAGE FORM (50/850 MG), QD
     Route: 048
     Dates: start: 2020
  2. METFORMIN HYDROCHLORIDE\VILDAGLIPTIN [Suspect]
     Active Substance: METFORMIN HYDROCHLORIDE\VILDAGLIPTIN
     Dosage: UNK (1 ? TABLET DAILY TO 2 TABLETS TWICE DAILY ONCE WEEK)
     Route: 048
     Dates: start: 2020
  3. LANTUS [Concomitant]
     Active Substance: INSULIN GLARGINE
     Indication: Diabetes mellitus
     Dosage: 1 DOSAGE FORM (100U/ML), QD
     Route: 058

REACTIONS (5)
  - Cerebral infarction [Not Recovered/Not Resolved]
  - Mobility decreased [Unknown]
  - Blood glucose increased [Not Recovered/Not Resolved]
  - Depression [Unknown]
  - Wrong technique in product usage process [Unknown]

NARRATIVE: CASE EVENT DATE: 20200101
